FAERS Safety Report 15575947 (Version 1)
Quarter: 2018Q4

REPORT INFORMATION
  Report Type: Spontaneous
  Country: FR (occurrence: FR)
  Receive Date: 20181101
  Receipt Date: 20181101
  Transmission Date: 20190205
  Serious: Yes (Hospitalization)
  Sender: FDA-Public Use
  Company Number: FR-TEVA-2018-FR-970761

PATIENT
  Age: 86 Year
  Sex: Female
  Weight: 46 kg

DRUGS (4)
  1. PANTOPRAZOLE [Suspect]
     Active Substance: PANTOPRAZOLE
     Indication: ENTERITIS
     Dosage: 40 MILLIGRAM DAILY;
     Route: 048
     Dates: start: 20180902, end: 20180910
  2. PRINCI B (PYRIDOXINE\THIAMINE) [Suspect]
     Active Substance: PYRIDOXINE\THIAMINE
     Indication: STARVATION
     Dosage: 4 DOSAGE FORMS DAILY;
     Route: 048
     Dates: start: 20180902, end: 20180908
  3. VENOFER [Suspect]
     Active Substance: IRON SUCROSE
     Indication: ANAEMIA
     Dosage: 3 BULBS EVERY 2 DAYS
     Route: 041
     Dates: start: 20180904, end: 20180910
  4. ACIDE FOLIQUE [Suspect]
     Active Substance: FOLIC ACID
     Indication: STARVATION
     Dosage: 10 MILLIGRAM DAILY;
     Route: 048
     Dates: start: 20180902, end: 20180908

REACTIONS (2)
  - Toxic skin eruption [Recovering/Resolving]
  - Eosinophilia [Recovering/Resolving]

NARRATIVE: CASE EVENT DATE: 20180906
